FAERS Safety Report 4665203-X (Version None)
Quarter: 2005Q2

REPORT INFORMATION
  Report Type: 
  Country: None (occurrence: None)
  Receive Date: 20050517
  Receipt Date: 20050502
  Transmission Date: 20051028
  Serious: Yes (Other)
  Sender: FDA-Public Use
  Company Number: USA050496313

PATIENT
  Age: 43 Year
  Sex: Female
  Weight: 64 kg

DRUGS (4)
  1. CYMBALTA [Suspect]
     Indication: DEPRESSION
     Dosage: 30 MG DAY
     Dates: start: 20050419, end: 20050419
  2. FORTEO [Concomitant]
  3. XANAX (ALPRAZOLAM DUM) [Concomitant]
  4. CALCIUM W/MAGNESIUM/VITAMIN D [Concomitant]

REACTIONS (13)
  - AURA [None]
  - BLOOD PRESSURE SYSTOLIC INCREASED [None]
  - CARDIAC DISORDER [None]
  - GRAND MAL CONVULSION [None]
  - HEADACHE [None]
  - LETHARGY [None]
  - LOSS OF CONSCIOUSNESS [None]
  - MUSCULOSKELETAL STIFFNESS [None]
  - PARAESTHESIA [None]
  - PAROSMIA [None]
  - POSTICTAL HEADACHE [None]
  - POSTICTAL STATE [None]
  - VENTRICULAR HYPERTROPHY [None]
